FAERS Safety Report 9943035 (Version 1)
Quarter: 2014Q1

REPORT INFORMATION
  Report Type: Spontaneous
  Country: US (occurrence: US)
  Receive Date: 20140303
  Receipt Date: 20140303
  Transmission Date: 20141002
  Serious: Yes (Hospitalization)
  Sender: FDA-Public Use
  Company Number: US-B.I. PHARMACEUTICALS,INC./RIDGEFIELD-2014-BI-08063BP

PATIENT
  Sex: Female
  Weight: 102 kg

DRUGS (11)
  1. MIRAPEX [Suspect]
     Indication: RESTLESS LEGS SYNDROME
     Route: 065
  2. MIRAPEX [Suspect]
     Indication: PARKINSON^S DISEASE
  3. NEURONTIN [Suspect]
     Indication: PRODUCT USED FOR UNKNOWN INDICATION
     Route: 065
  4. DIOVAN [Concomitant]
     Indication: HYPERTENSION
     Dosage: 80 MG
     Route: 065
  5. PRILOSEC [Concomitant]
     Dosage: 80 MG
     Route: 065
  6. CELEXA [Concomitant]
     Dosage: 40 MG
     Route: 065
  7. SYNTROID [Concomitant]
     Dosage: 0.175 MCG
     Route: 065
  8. SIMVASTATIN [Concomitant]
     Dosage: 80 MG
     Route: 065
  9. MORPHINE ER [Concomitant]
     Dosage: 90 MG
     Route: 065
  10. LYRICA [Concomitant]
     Dosage: 300 MG
     Route: 065
  11. BUPROPION [Concomitant]
     Dosage: 300 MG
     Route: 065

REACTIONS (5)
  - Dehydration [Unknown]
  - Renal failure [Unknown]
  - Loss of consciousness [Unknown]
  - Dyskinesia [Unknown]
  - Drug hypersensitivity [Unknown]
